FAERS Safety Report 7328865-4 (Version None)
Quarter: 2011Q1

REPORT INFORMATION
  Report Type: 
  Country: None (occurrence: None)
  Receive Date: 20110303
  Receipt Date: 20110222
  Transmission Date: 20110831
  Serious: Yes (Hospitalization, Other)
  Sender: FDA-Public Use
  Company Number: US-ROCHE-762192

PATIENT
  Sex: Male

DRUGS (2)
  1. ALCOHOL WIPE [Concomitant]
  2. PEGASYS [Suspect]
     Route: 065

REACTIONS (4)
  - BACTERIAL TEST POSITIVE [None]
  - RENAL FAILURE [None]
  - CEREBROVASCULAR ACCIDENT [None]
  - RESPIRATORY FAILURE [None]
